FAERS Safety Report 14760812 (Version 4)
Quarter: 2018Q2

REPORT INFORMATION
  Report Type: Spontaneous
  Country: FI (occurrence: FI)
  Receive Date: 20180414
  Receipt Date: 20180517
  Transmission Date: 20180711
  Serious: Yes (Disabling)
  Sender: FDA-Public Use
  Company Number: FI-CONCORDIA PHARMACEUTICALS INC.-E2B_00011068

PATIENT
  Age: 84 Year
  Sex: Female

DRUGS (9)
  1. FURESIS COMP (FUROSEMIDE-TRIAMTERENE) [Suspect]
     Active Substance: FUROSEMIDE\TRIAMTERENE
     Route: 065
     Dates: start: 2003, end: 20180319
  2. CALCICHEW D3 FORTE [Concomitant]
     Active Substance: CALCIUM\CHOLECALCIFEROL
     Indication: PRODUCT USED FOR UNKNOWN INDICATION
     Route: 065
  3. ELIQUIS [Suspect]
     Active Substance: APIXABAN
     Indication: PRODUCT USED FOR UNKNOWN INDICATION
     Route: 065
     Dates: start: 201711
  4. DIGOXIN. [Suspect]
     Active Substance: DIGOXIN
     Indication: ATRIAL FIBRILLATION
     Route: 065
     Dates: start: 20180314
  5. SOMAC [Concomitant]
     Active Substance: PANTOPRAZOLE SODIUM
     Indication: PRODUCT USED FOR UNKNOWN INDICATION
     Route: 065
     Dates: start: 201803, end: 201803
  6. DIGOXIN. [Suspect]
     Active Substance: DIGOXIN
  7. ATENOLOL SANDOZ [Suspect]
     Active Substance: ATENOLOL
     Indication: PRODUCT USED FOR UNKNOWN INDICATION
     Route: 065
     Dates: start: 20180314
  8. FURESIS [Suspect]
     Active Substance: FUROSEMIDE
     Indication: PRODUCT USED FOR UNKNOWN INDICATION
     Route: 065
     Dates: start: 20180319
  9. FURESIS [Suspect]
     Active Substance: FUROSEMIDE
     Dosage: 1 DF, 3 IN 1 WEEK
     Dates: end: 20180319

REACTIONS (6)
  - Dyspnoea exertional [Not Recovered/Not Resolved]
  - Dizziness [Not Recovered/Not Resolved]
  - Peripheral swelling [Not Recovered/Not Resolved]
  - Quality of life decreased [Not Recovered/Not Resolved]
  - Renal failure [Not Recovered/Not Resolved]
  - Fatigue [Not Recovered/Not Resolved]

NARRATIVE: CASE EVENT DATE: 201711
